FAERS Safety Report 4714216-8 (Version None)
Quarter: 2005Q3

REPORT INFORMATION
  Report Type: 
  Country: None (occurrence: None)
  Receive Date: 20050712
  Receipt Date: 20050703
  Transmission Date: 20060218
  Serious: Yes (Other)
  Sender: FDA-Public Use
  Company Number: BE-2005-009801

PATIENT
  Sex: Female

DRUGS (1)
  1. MIRENA [Suspect]
     Indication: CONTRACEPTION
     Dosage: 20 U G/DAY, CONT, INTRA-UTERINE
     Route: 015
     Dates: start: 20050423, end: 20050622

REACTIONS (9)
  - ABDOMINAL PAIN [None]
  - ARTHRALGIA [None]
  - ERYTHEMA [None]
  - MYALGIA [None]
  - PAIN IN EXTREMITY [None]
  - PROTEIN URINE PRESENT [None]
  - RASH [None]
  - URINE ANALYSIS ABNORMAL [None]
  - VASCULITIS [None]
